FAERS Safety Report 16803617 (Version 2)
Quarter: 2025Q4

REPORT INFORMATION
  Report Type: Spontaneous
  Country: EU (occurrence: EU)
  Receive Date: 20190913
  Receipt Date: 20251024
  Transmission Date: 20260118
  Serious: Yes (Hospitalization)
  Sender: TEVA
  Company Number: None

PATIENT
  Age: 79 Year
  Sex: Male
  Weight: 65.4 kg

DRUGS (6)
  1. ESOMEPRAZOLE [Suspect]
     Active Substance: ESOMEPRAZOLE
     Indication: Product used for unknown indication
     Dosage: 20 MG, QD
     Route: 048
     Dates: start: 20190723, end: 20190814
  2. METHYLPREDNISOLONE [Concomitant]
     Active Substance: METHYLPREDNISOLONE
     Indication: Acute respiratory failure
     Route: 042
     Dates: start: 20190712, end: 20190713
  3. PREDNISONE [Concomitant]
     Active Substance: PREDNISONE
     Indication: Acute respiratory failure
     Route: 048
     Dates: start: 20190707, end: 20190712
  4. DAPTOMYCIN [Suspect]
     Active Substance: DAPTOMYCIN
     Indication: Antibiotic prophylaxis
     Route: 042
     Dates: start: 20190704, end: 20190730
  5. PREDNISOLONE [Suspect]
     Active Substance: PREDNISOLONE
     Indication: Acute respiratory failure
     Dosage: 40 MG, QD
     Route: 048
     Dates: start: 20190723, end: 20190812
  6. CEFTAROLINE FOSAMIL [Suspect]
     Active Substance: CEFTAROLINE FOSAMIL
     Indication: Antibiotic prophylaxis
     Route: 042
     Dates: start: 20190704, end: 20190730

REACTIONS (1)
  - Thrombocytopenia [Not Recovered/Not Resolved]

NARRATIVE: CASE EVENT DATE: 20190729
